FAERS Safety Report 21814626 (Version 1)
Quarter: 2023Q1

REPORT INFORMATION
  Report Type: Spontaneous
  Country: US (occurrence: US)
  Receive Date: 20230104
  Receipt Date: 20230104
  Transmission Date: 20230418
  Serious: Yes (Other)
  Sender: FDA-Public Use
  Company Number: US-drreddys-LIT/USA/22/0159190

PATIENT
  Age: 31 Year
  Sex: Female

DRUGS (8)
  1. LURASIDONE [Suspect]
     Active Substance: LURASIDONE
     Indication: Bipolar I disorder
  2. LURASIDONE [Suspect]
     Active Substance: LURASIDONE
     Dosage: AT 24 WEEKS GA, RESUMED
  3. LURASIDONE [Suspect]
     Active Substance: LURASIDONE
     Dosage: DURING THE THIRD TRIMESTER, THE DOSE WAS INCREASED
  4. LAMOTRIGINE [Suspect]
     Active Substance: LAMOTRIGINE
     Indication: Product used for unknown indication
  5. BUPROPION [Suspect]
     Active Substance: BUPROPION
     Indication: Prophylaxis
  6. ARMOUR THYROID [Suspect]
     Active Substance: THYROID, PORCINE
     Indication: Product used for unknown indication
  7. FOLIC ACID [Suspect]
     Active Substance: FOLIC ACID
     Indication: Product used for unknown indication
  8. LITHIUM [Suspect]
     Active Substance: LITHIUM
     Indication: Product used for unknown indication

REACTIONS (9)
  - Bipolar disorder [Recovering/Resolving]
  - Disease recurrence [Recovering/Resolving]
  - Suicidal ideation [Unknown]
  - Depressive symptom [Recovering/Resolving]
  - Depression [Recovering/Resolving]
  - Anxiety [Recovering/Resolving]
  - Anxiety [Recovering/Resolving]
  - Normal newborn [Recovered/Resolved]
  - Exposure during pregnancy [Recovered/Resolved]
